FAERS Safety Report 7168053-8 (Version None)
Quarter: 2010Q4

REPORT INFORMATION
  Report Type: 
  Country: None (occurrence: None)
  Receive Date: 20101216
  Receipt Date: 20101203
  Transmission Date: 20110411
  Serious: Yes (Hospitalization, Other)
  Sender: FDA-Public Use
  Company Number: PHHY2010JP68707

PATIENT
  Sex: Male
  Weight: 70 kg

DRUGS (1)
  1. VOLTAREN [Suspect]
     Indication: PAIN IN EXTREMITY
     Dosage: UNK
     Route: 048
     Dates: start: 20101009

REACTIONS (2)
  - LOSS OF CONSCIOUSNESS [None]
  - TONIC CONVULSION [None]
